FAERS Safety Report 10307883 (Version 1)
Quarter: 2014Q3

REPORT INFORMATION
  Report Type: Spontaneous
  Country: GB (occurrence: None)
  Receive Date: 20140711
  Receipt Date: 20140711
  Transmission Date: 20150326
  Serious: Yes (Hospitalization)
  Sender: FDA-Public Use
  Company Number: AUR-APL-2014-07271

PATIENT
  Age: 29 Year
  Sex: Female

DRUGS (2)
  1. ZOPICLONE (ZOPICLONE) [Concomitant]
     Active Substance: ZOPICLONE
  2. OLANZAPINE. [Suspect]
     Active Substance: OLANZAPINE
     Indication: INJURY
     Route: 048

REACTIONS (8)
  - Memory impairment [None]
  - Activities of daily living impaired [None]
  - Off label use [None]
  - Insomnia [None]
  - Injury [None]
  - Drug withdrawal syndrome [None]
  - Amnesia [None]
  - Emotional distress [None]
